FAERS Safety Report 9531191 (Version 1)
Quarter: 2013Q2

REPORT INFORMATION
  Report Type: Spontaneous
  Country: US (occurrence: None)
  Receive Date: 20130418
  Receipt Date: 20130418
  Transmission Date: 20140414
  Serious: Yes (Other)
  Sender: FDA-Public Use
  Company Number: 1301USA002093

PATIENT
  Age: 7 Year
  Sex: Male

DRUGS (2)
  1. SINGULAIR (MONTELUKAST SODIUM) TABLET [Suspect]
     Indication: ATTENTION DEFICIT/HYPERACTIVITY DISORDER
  2. FOCALIN XR (DEXMETHYLPHENIDATE HYDROCHLORIDE) EXTENDED RELEASE CAPSULES [Suspect]
     Route: 048

REACTIONS (4)
  - Insomnia [None]
  - Heart rate increased [None]
  - Eating disorder [None]
  - Depressed mood [None]
